FAERS Safety Report 15307248 (Version 3)
Quarter: 2018Q3

REPORT INFORMATION
  Report Type: Spontaneous
  Country: FR (occurrence: FR)
  Receive Date: 20180822
  Receipt Date: 20180905
  Transmission Date: 20181010
  Serious: Yes (Hospitalization, Other)
  Sender: FDA-Public Use
  Company Number: FR-PFIZER INC-2018334247

PATIENT
  Age: 95 Year
  Sex: Female

DRUGS (16)
  1. LOSARTAN. [Concomitant]
     Active Substance: LOSARTAN
     Dosage: 100 UNK, UNK
  2. IRBESARTAN. [Suspect]
     Active Substance: IRBESARTAN
     Dosage: 150 MG, QD
     Route: 048
     Dates: start: 20180731
  3. LERCAN [Suspect]
     Active Substance: LERCANIDIPINE
     Dosage: 10 MG, QD
     Route: 048
     Dates: start: 20180731
  4. BISOPROLOL FUMARATE. [Suspect]
     Active Substance: BISOPROLOL FUMARATE
     Dosage: 5 MG, QD
     Route: 048
     Dates: start: 20180731
  5. ALLOPURINOL. [Suspect]
     Active Substance: ALLOPURINOL
     Dosage: 100 MG, QD
     Route: 048
     Dates: start: 20180731
  6. MIRTAZAPINE. [Concomitant]
     Active Substance: MIRTAZAPINE
     Dosage: 15 UNK, UNK
  7. IMOVANE [Concomitant]
     Active Substance: ZOPICLONE
     Dosage: 3.75 UNK, UNK
  8. OFLOCET [Suspect]
     Active Substance: OFLOXACIN
     Dosage: 200 MG, QD
     Route: 048
     Dates: start: 20180731
  9. CELLUVISC [CARMELLOSE SODIUM] [Concomitant]
     Dosage: 4MG/0.4ML
  10. TRANSIPEG [MACROGOL] [Concomitant]
     Dosage: UNK
  11. PANTOPRAZOLE [Suspect]
     Active Substance: PANTOPRAZOLE
     Dosage: 40 MG, QD
     Route: 048
     Dates: start: 20180731
  12. GELTIM [Concomitant]
     Active Substance: TIMOLOL MALEATE
  13. EUPRESSYL [Suspect]
     Active Substance: URAPIDIL
     Dosage: 30 MG, QD
     Route: 048
     Dates: start: 20180731
  14. PARACETAMOL [Concomitant]
     Active Substance: ACETAMINOPHEN
     Dosage: 1 G, UNK
  15. KARDEGIC [Concomitant]
     Active Substance: ASPIRIN DL-LYSINE
     Dosage: 75 UNK, UNK
     Route: 065
  16. SERESTA [Concomitant]
     Active Substance: OXAZEPAM
     Dosage: 10 UNK, UNK

REACTIONS (11)
  - Toxicity to various agents [Recovered/Resolved]
  - Wrong drug administered [Recovered/Resolved]
  - Cognitive disorder [Recovered/Resolved]
  - Hypohidrosis [Recovered/Resolved]
  - Hypotension [Recovered/Resolved]
  - Loss of consciousness [Recovered/Resolved]
  - Pallor [Recovered/Resolved]
  - Medication error [Recovered/Resolved]
  - Malaise [Recovered/Resolved]
  - Bradycardia [Recovered/Resolved]
  - Vomiting [Recovered/Resolved]

NARRATIVE: CASE EVENT DATE: 20180731
